FAERS Safety Report 9463903 (Version 2)
Quarter: 2013Q4

REPORT INFORMATION
  Report Type: Spontaneous
  Country: US (occurrence: US)
  Receive Date: 20130819
  Receipt Date: 20131106
  Transmission Date: 20140711
  Serious: No
  Sender: FDA-Public Use
  Company Number: US-JNJFOC-20130802904

PATIENT
  Sex: Male
  Weight: 84.82 kg

DRUGS (6)
  1. FENTANYL TRANSDERMAL SYSTEM [Suspect]
     Indication: NERVE INJURY
     Route: 062
  2. FENTANYL TRANSDERMAL SYSTEM [Suspect]
     Indication: NERVE INJURY
     Route: 062
  3. FENTANYL TRANSDERMAL SYSTEM [Suspect]
     Indication: NERVE INJURY
     Route: 062
  4. FENTANYL TRANSDERMAL SYSTEM [Suspect]
     Indication: NERVE INJURY
     Route: 062
  5. FENTANYL TRANSDERMAL SYSTEM [Suspect]
     Indication: NERVE INJURY
     Route: 062
     Dates: start: 20130805
  6. OXYCODONE [Concomitant]
     Indication: BREAKTHROUGH PAIN
     Route: 048
     Dates: start: 20130805

REACTIONS (7)
  - Drug administered at inappropriate site [Recovered/Resolved]
  - Product adhesion issue [Unknown]
  - Somnolence [Recovered/Resolved]
  - Therapeutic response decreased [Recovered/Resolved]
  - Paraesthesia [Not Recovered/Not Resolved]
  - Pain [Not Recovered/Not Resolved]
  - Wrong technique in drug usage process [Not Recovered/Not Resolved]
